FAERS Safety Report 4590089-1 (Version None)
Quarter: 2005Q1

REPORT INFORMATION
  Report Type: 
  Country: None (occurrence: None)
  Receive Date: 20050217
  Receipt Date: 20050202
  Transmission Date: 20050727
  Serious: Yes (Hospitalization)
  Sender: FDA-Public Use
  Company Number: 2004JP000899

PATIENT
  Age: 65 Year
  Sex: Male

DRUGS (3)
  1. PROTOPIC [Suspect]
     Indication: DERMATITIS ATOPIC
     Dosage: 0.10%, TOPICAL
     Route: 061
  2. BETAMETHASONE [Concomitant]
  3. FULMETA (MOMETASONE FUROATE) [Concomitant]

REACTIONS (13)
  - ALANINE AMINOTRANSFERASE INCREASED [None]
  - ASPARTATE AMINOTRANSFERASE INCREASED [None]
  - ASTHENIA [None]
  - BLADDER DISORDER [None]
  - COORDINATION ABNORMAL [None]
  - GASTROINTESTINAL DISORDER [None]
  - INTRASPINAL ABSCESS [None]
  - NECK PAIN [None]
  - QUADRIPLEGIA [None]
  - SPINAL OSTEOARTHRITIS [None]
  - STAPHYLOCOCCAL ABSCESS [None]
  - STAPHYLOCOCCAL SEPSIS [None]
  - URINARY TRACT INFECTION [None]
